FAERS Safety Report 15103816 (Version 1)
Quarter: 2018Q2

REPORT INFORMATION
  Report Type: Spontaneous
  Country: US (occurrence: US)
  Receive Date: 20180611
  Receipt Date: 20180611
  Transmission Date: 20180711
  Serious: No
  Sender: FDA-Public Use
  Company Number: None

PATIENT
  Age: 9 Year
  Sex: Female

DRUGS (1)
  1. HUMATROPE [Suspect]
     Active Substance: SOMATROPIN
     Indication: HYPOPITUITARISM
     Route: 058
     Dates: start: 20180205, end: 20180528

REACTIONS (4)
  - Incorrect dose administered [None]
  - Product use issue [None]
  - Incorrect drug administration rate [None]
  - Injection site swelling [None]

NARRATIVE: CASE EVENT DATE: 20180528
